FAERS Safety Report 8890613 (Version 1)
Quarter: 2012Q4

REPORT INFORMATION
  Report Type: 
  Country: US (occurrence: US)
  Receive Date: 20121107
  Receipt Date: 20121107
  Transmission Date: 20130627
  Serious: No
  Sender: FDA-Public Use
  Company Number: US-BAYER-2012-116611

PATIENT
  Age: 47 Year
  Sex: Male
  Weight: 70.3 kg

DRUGS (4)
  1. BETASERON [Suspect]
     Indication: MS
     Dosage: 0.25 mg (1ML), QOD
     Route: 058
  2. ZOLPIDEM [Concomitant]
     Dosage: 5 mg, UNK
  3. FLAXSEED OIL [Concomitant]
  4. VITAMIN C [Concomitant]
     Dosage: 500 mg, UNK

REACTIONS (1)
  - Injection site pain [Unknown]
